FAERS Safety Report 7260672-3 (Version None)
Quarter: 2011Q1

REPORT INFORMATION
  Report Type: 
  Country: None (occurrence: None)
  Receive Date: 20110130
  Receipt Date: 20101111
  Transmission Date: 20110831
  Serious: No
  Sender: FDA-Public Use
  Company Number: US-ABBOTT-10P-163-0684843-00

PATIENT
  Age: 47 Year
  Sex: Female

DRUGS (6)
  1. MULTI-VITAMIN [Concomitant]
     Indication: PRODUCT USED FOR UNKNOWN INDICATION
  2. MERCAPTOPURINE [Concomitant]
     Indication: CROHN'S DISEASE
     Dosage: AT NIGHT
  3. PROGESTERONE [Concomitant]
     Indication: HORMONE LEVEL ABNORMAL
     Dosage: 1/2 TSP
  4. CALCIUM WITH D AND MAGNESIUM [Concomitant]
     Indication: PRODUCT USED FOR UNKNOWN INDICATION
  5. FISH OIL [Concomitant]
     Indication: PRODUCT USED FOR UNKNOWN INDICATION
  6. HUMIRA [Suspect]
     Indication: CROHN'S DISEASE
     Dates: start: 20100910

REACTIONS (2)
  - MOOD SWINGS [None]
  - PAIN IN EXTREMITY [None]
